FAERS Safety Report 5365258-3 (Version None)
Quarter: 2007Q2

REPORT INFORMATION
  Report Type: 
  Country: None (occurrence: None)
  Receive Date: 20070530
  Receipt Date: 20070119
  Transmission Date: 20071010
  Serious: No
  Sender: FDA-Public Use
  Company Number: 2006PV021462

PATIENT
  Age: 54 Year
  Sex: Female
  Weight: 140.6151 kg

DRUGS (11)
  1. BYETTA [Suspect]
     Indication: DIABETES MELLITUS NON-INSULIN-DEPENDENT
     Dosage: 5 MCG;BID; SC;  10 MCG; BID; SC
     Route: 058
     Dates: start: 20060601, end: 20060101
  2. BYETTA [Suspect]
     Indication: DIABETES MELLITUS NON-INSULIN-DEPENDENT
     Dosage: 5 MCG;BID; SC;  10 MCG; BID; SC
     Route: 058
     Dates: start: 20060701, end: 20060701
  3. BYETTA [Suspect]
     Indication: DIABETES MELLITUS NON-INSULIN-DEPENDENT
     Dosage: 5 MCG;BID; SC;  10 MCG; BID; SC
     Route: 058
     Dates: start: 20060101, end: 20061101
  4. BYETTA [Suspect]
     Indication: DIABETES MELLITUS NON-INSULIN-DEPENDENT
     Dosage: 5 MCG;BID; SC;  10 MCG; BID; SC
     Route: 058
     Dates: start: 20060101
  5. BYETTA [Suspect]
     Indication: DIABETES MELLITUS NON-INSULIN-DEPENDENT
     Dosage: 5 MCG;BID; SC;  10 MCG; BID; SC
     Route: 058
     Dates: start: 20061101
  6. AMARYL [Concomitant]
  7. AVANDARYL [Concomitant]
  8. CHROMIUM PICOLINATE [Concomitant]
  9. DIOVAN [Concomitant]
  10. NEXIUM [Concomitant]
  11. GLIMEPIRIDE [Concomitant]

REACTIONS (6)
  - DIZZINESS [None]
  - FEELING JITTERY [None]
  - INJECTION SITE IRRITATION [None]
  - NAUSEA [None]
  - PARAESTHESIA [None]
  - WEIGHT DECREASED [None]
